FAERS Safety Report 7101394 (Version 13)
Quarter: 2013Q2

REPORT INFORMATION
  Report Type: Spontaneous
  Country: US (occurrence: US)
  Receive Date: 20090831
  Receipt Date: 20130508
  Transmission Date: 20140414
  Serious: Yes (Death, Hospitalization, Other)
  Sender: FDA-Public Use
  Company Number: PHEH2009US09838

PATIENT
  Age: 47 Year
  Sex: Female

DRUGS (29)
  1. ZOMETA [Suspect]
     Indication: METASTASES TO BONE
     Route: 042
  2. ARIMIDEX ^ASTRAZENECA^ [Concomitant]
     Dosage: UNK
  3. XELODA [Concomitant]
  4. TAXOL [Concomitant]
  5. TAXOTERE [Concomitant]
  6. GEMCITABINE [Concomitant]
  7. NEUPOGEN [Concomitant]
  8. CARBOPLATIN [Concomitant]
  9. LOVENOX [Concomitant]
  10. LEUKINE [Concomitant]
  11. MAGNESIUM OXIDE [Concomitant]
  12. NEXIUM [Concomitant]
  13. ATIVAN [Concomitant]
  14. LAXATIVES [Concomitant]
  15. LORTAB [Concomitant]
  16. PHENERGAN ^AVENTIS PHARMA^ [Concomitant]
  17. TEMAZEPAM [Concomitant]
  18. IMODIUM ^JANSSEN^ [Concomitant]
  19. OXYGEN [Concomitant]
  20. ZYRTEC [Concomitant]
  21. EFFEXOR                                 /USA/ [Concomitant]
  22. ALBUTEROL [Concomitant]
  23. LOPRESSOR [Concomitant]
  24. PREDNISONE [Concomitant]
  25. LEVAQUIN [Concomitant]
  26. TAMOXIFEN [Concomitant]
  27. FASLODEX [Concomitant]
  28. AROMASIN [Concomitant]
  29. CYTOXAN [Concomitant]

REACTIONS (76)
  - Death [Fatal]
  - Mental status changes [Unknown]
  - Sepsis [Unknown]
  - Sphingomonas paucimobilis infection [Unknown]
  - Pneumonia [Unknown]
  - Cellulitis [Unknown]
  - Infection [Unknown]
  - Respiratory failure [Unknown]
  - Dehydration [Unknown]
  - Diabetes mellitus [Unknown]
  - Atrophic vulvovaginitis [Unknown]
  - Vaginal infection [Unknown]
  - Vulvovaginal pruritus [Unknown]
  - Pleural fibrosis [Unknown]
  - Pleural effusion [Unknown]
  - Aspiration pleural cavity [Unknown]
  - Breath sounds abnormal [Unknown]
  - Adrenal gland cancer [Recovering/Resolving]
  - Adnexa uteri cyst [Unknown]
  - Tumour marker increased [Recovering/Resolving]
  - Second primary malignancy [Unknown]
  - Chronic sinusitis [Unknown]
  - Adenocarcinoma [Unknown]
  - Depression [Unknown]
  - Tachycardia [Unknown]
  - Deep vein thrombosis [Unknown]
  - Osteonecrosis of jaw [Unknown]
  - General physical health deterioration [Unknown]
  - Pain [Unknown]
  - Anxiety [Unknown]
  - Anhedonia [Unknown]
  - Periodontitis [Unknown]
  - Metastases to abdominal cavity [Unknown]
  - Metastases to neck [Unknown]
  - Hepatic steatosis [Unknown]
  - Insomnia [Unknown]
  - Scoliosis [Unknown]
  - Gastrooesophageal reflux disease [Unknown]
  - Hiatus hernia [Unknown]
  - Gastritis [Unknown]
  - Hypotension [Unknown]
  - Hypovolaemia [Unknown]
  - Anaemia [Unknown]
  - Neutropenia [Unknown]
  - Atelectasis [Unknown]
  - Lymphoedema [Unknown]
  - Pneumothorax [Unknown]
  - Metastases to liver [Unknown]
  - Lung infiltration [Unknown]
  - Metastases to pleura [Unknown]
  - Dysphagia [Unknown]
  - Lung consolidation [Unknown]
  - Obstructive airways disorder [Unknown]
  - Dyspnoea [Unknown]
  - Bronchitis [Unknown]
  - Cardiac failure congestive [Unknown]
  - Pain in extremity [Unknown]
  - Oedema [Unknown]
  - Fibrosis [Unknown]
  - Mobility decreased [Unknown]
  - Local swelling [Unknown]
  - Gait disturbance [Unknown]
  - Respiration abnormal [Unknown]
  - Nocturia [Unknown]
  - Asthenia [Unknown]
  - Gastritis haemorrhagic [Unknown]
  - Lung neoplasm malignant [Unknown]
  - Gastric cancer [Unknown]
  - Metastases to bone [Unknown]
  - Malignant neoplasm progression [Unknown]
  - Asphyxia [Unknown]
  - Osteosclerosis [Unknown]
  - Hepatomegaly [Unknown]
  - Adrenal calcification [Unknown]
  - Metastases to spine [Unknown]
  - Sinus tachycardia [Unknown]
